FAERS Safety Report 24692170 (Version 4)
Quarter: 2024Q4

REPORT INFORMATION
  Report Type: Spontaneous
  Country: FR (occurrence: FR)
  Receive Date: 20241203
  Receipt Date: 20241227
  Transmission Date: 20250115
  Serious: Yes (Hospitalization)
  Sender: TEVA
  Company Number: None

PATIENT
  Age: 60 Year
  Sex: Male
  Weight: 76 kg

DRUGS (2)
  1. LANSOPRAZOLE [Suspect]
     Active Substance: LANSOPRAZOLE
     Indication: Product used for unknown indication
     Dosage: 30 MG 2 TIMES A DAY, 1 IN THE MORNING AND 1 IN THE EVENING
     Route: 048
     Dates: start: 20240522, end: 20240613
  2. LOPERAMIDE HYDROCHLORIDE [Suspect]
     Active Substance: LOPERAMIDE HYDROCHLORIDE
     Indication: Product used for unknown indication
     Dosage: 2 MG 3 TIMES A DAY, 1 IN THE MORNING, 1 AT NOON AND 1 IN THE EVENING?LOPERAMIDE HYDROCHLORIDE
     Route: 048
     Dates: start: 20240524, end: 20240613

REACTIONS (1)
  - Stevens-Johnson syndrome [Recovered/Resolved]

NARRATIVE: CASE EVENT DATE: 20240612
